FAERS Safety Report 4599849-4 (Version None)
Quarter: 2005Q1

REPORT INFORMATION
  Report Type: 
  Country: None (occurrence: None)
  Receive Date: 20050303
  Receipt Date: 20041215
  Transmission Date: 20050727
  Serious: Yes (Hospitalization)
  Sender: FDA-Public Use
  Company Number: 2004BI001628

PATIENT
  Age: 41 Year
  Sex: Female

DRUGS (14)
  1. AVONEX [Suspect]
     Indication: MULTIPLE SCLEROSIS
     Dosage: 30 UG; QW; IM
     Route: 030
     Dates: start: 19960901
  2. PROVIGIL [Concomitant]
  3. HYDROXYZINE [Concomitant]
  4. SALAGEN [Concomitant]
  5. DITROPAN [Concomitant]
  6. PAXIL [Concomitant]
  7. DIFLUCAN [Concomitant]
  8. VIOXX [Concomitant]
  9. NASONEX [Concomitant]
  10. OXYCONTIN [Concomitant]
  11. ATENOLOL AND CHLORTHALIDONE [Concomitant]
  12. PREDNISONE [Concomitant]
  13. DOCUSATE [Concomitant]
  14. HYDROCHLOROTHIAZIDE [Concomitant]

REACTIONS (15)
  - BLOOD CORTISOL DECREASED [None]
  - CONDITION AGGRAVATED [None]
  - DYSKINESIA [None]
  - ECCHYMOSIS [None]
  - FACE INJURY [None]
  - FALL [None]
  - GRAND MAL CONVULSION [None]
  - HEAD INJURY [None]
  - HYPONATRAEMIA [None]
  - LOSS OF CONSCIOUSNESS [None]
  - MULTIPLE SCLEROSIS [None]
  - POSTICTAL STATE [None]
  - SKIN LACERATION [None]
  - SWELLING [None]
  - TONGUE ULCERATION [None]
